FAERS Safety Report 14662351 (Version 5)
Quarter: 2018Q2

REPORT INFORMATION
  Report Type: Spontaneous
  Country: JP (occurrence: JP)
  Receive Date: 20180321
  Receipt Date: 20180625
  Transmission Date: 20180711
  Serious: Yes (Disabling, Other)
  Sender: FDA-Public Use
  Company Number: JP-ROCHE-2090593

PATIENT
  Age: 62 Year
  Sex: Female
  Weight: 54 kg

DRUGS (13)
  1. ACTEMRA [Suspect]
     Active Substance: TOCILIZUMAB
     Indication: CYTOKINE RELEASE SYNDROME
     Dosage: DOSAGE IS UNCERTAIN.
     Route: 065
     Dates: start: 201712
  2. TISAGENLECLEUCEL. [Suspect]
     Active Substance: TISAGENLECLEUCEL
     Indication: DIFFUSE LARGE B-CELL LYMPHOMA
     Dosage: 2.4415X10^3 BAGS TRANSDUCED CTL019 CELL COUNT
     Route: 065
     Dates: start: 20171207, end: 20171207
  3. CISPLATIN. [Concomitant]
     Active Substance: CISPLATIN
  4. GEMCITABINE [Concomitant]
     Active Substance: GEMCITABINE\GEMCITABINE HYDROCHLORIDE
  5. RABEPRAZOLE NA [Concomitant]
     Active Substance: RABEPRAZOLE SODIUM
     Indication: PROPHYLAXIS AGAINST GASTROINTESTINAL ULCER
     Route: 048
     Dates: start: 20171010
  6. BENAMBAX [Concomitant]
     Active Substance: PENTAMIDINE
     Indication: ANTIFUNGAL PROPHYLAXIS
     Dosage: DOSAGE IS UNCERTAIN.
     Route: 055
     Dates: start: 20171013
  7. FLUCONAZOLE. [Concomitant]
     Active Substance: FLUCONAZOLE
     Indication: INFECTION PROPHYLAXIS
     Route: 048
     Dates: start: 20171216
  8. FEXOFENADINE HYDROCHLORIDE. [Concomitant]
     Active Substance: FEXOFENADINE HYDROCHLORIDE
     Indication: CONJUNCTIVITIS ALLERGIC
     Route: 048
     Dates: start: 20180220
  9. DEXAMETHASONE. [Concomitant]
     Active Substance: DEXAMETHASONE
  10. MAGMITT [Concomitant]
     Active Substance: MAGNESIUM OXIDE
     Indication: CONSTIPATION PROPHYLAXIS
     Dosage: PROPER PROPER QUANTITY
     Route: 048
  11. RITUXIMAB. [Concomitant]
     Active Substance: RITUXIMAB
     Route: 065
  12. SULTANOL [Concomitant]
     Active Substance: ALBUTEROL SULFATE
     Indication: ANTIFUNGAL PROPHYLAXIS
     Dosage: DOSAGE IS UNCERTAIN.
     Route: 055
     Dates: start: 20171013
  13. LIVOSTIN [Concomitant]
     Active Substance: LEVOCABASTINE HYDROCHLORIDE
     Indication: CONJUNCTIVITIS ALLERGIC
     Dosage: 1 DROP AND DIVIDED INTO 4 DOSES
     Route: 047
     Dates: start: 20180220

REACTIONS (5)
  - Neutrophil count decreased [Not Recovered/Not Resolved]
  - Pancytopenia [Not Recovered/Not Resolved]
  - Platelet count decreased [Not Recovered/Not Resolved]
  - Off label use [Unknown]
  - Anaemia [Not Recovered/Not Resolved]

NARRATIVE: CASE EVENT DATE: 20171226
